FAERS Safety Report 10219271 (Version 1)
Quarter: 2014Q2

REPORT INFORMATION
  Report Type: Spontaneous
  Country: US (occurrence: None)
  Receive Date: 20140604
  Receipt Date: 20140604
  Transmission Date: 20141212
  Serious: Yes (Hospitalization)
  Sender: FDA-Public Use
  Company Number: None

PATIENT
  Age: 63 Year
  Sex: Male

DRUGS (1)
  1. FORTEO 600 MCG LILLY [Suspect]
     Dosage: 20 MCG DAILY SUB Q
     Route: 058
     Dates: start: 20130926

REACTIONS (2)
  - Drug dose omission [None]
  - Investigation [None]
